FAERS Safety Report 17181242 (Version 1)
Quarter: 2019Q4

REPORT INFORMATION
  Report Type: Spontaneous
  Country: SE (occurrence: SE)
  Receive Date: 20191220
  Receipt Date: 20191220
  Transmission Date: 20200122
  Serious: Yes (Hospitalization)
  Sender: FDA-Public Use
  Company Number: SE-TEVA-2019-SE-1154011

PATIENT
  Age: 47 Year
  Sex: Female

DRUGS (2)
  1. OXASCAND [Suspect]
     Active Substance: OXAZEPAM
     Dosage: 30 ST AT 5 MG 150 MG
     Route: 048
     Dates: start: 20181126, end: 20181126
  2. PROPAVAN [Suspect]
     Active Substance: PROPIOMAZINE
     Dosage: 50 ST AT 25 1250 MG
     Route: 048
     Dates: start: 20181126, end: 20181126

REACTIONS (3)
  - Depressed level of consciousness [Unknown]
  - Intentional overdose [Unknown]
  - Intentional self-injury [Unknown]

NARRATIVE: CASE EVENT DATE: 20181126
